FAERS Safety Report 7094374-3 (Version None)
Quarter: 2010Q4

REPORT INFORMATION
  Report Type: 
  Country: None (occurrence: None)
  Receive Date: 20101110
  Receipt Date: 20101101
  Transmission Date: 20110411
  Serious: Yes (Other)
  Sender: FDA-Public Use
  Company Number: US-ASTRAZENECA-2008UW26445

PATIENT
  Age: 55 Year
  Sex: Female
  Weight: 65.8 kg

DRUGS (5)
  1. SEROQUEL [Suspect]
     Indication: SLEEP DISORDER
     Route: 048
     Dates: start: 20000101
  2. SEROQUEL [Suspect]
     Route: 048
     Dates: start: 20040902
  3. SEROQUEL [Suspect]
     Route: 048
  4. SEROQUEL [Suspect]
     Route: 048
     Dates: start: 20100101, end: 20100101
  5. SEROQUEL [Suspect]
     Route: 048
     Dates: start: 20100101

REACTIONS (9)
  - ASTHENIA [None]
  - DEPENDENCE [None]
  - DRUG DOSE OMISSION [None]
  - FALL [None]
  - INCORRECT DOSE ADMINISTERED [None]
  - INSOMNIA [None]
  - LUNG CARCINOMA CELL TYPE UNSPECIFIED STAGE IV [None]
  - NEOPLASM MALIGNANT [None]
  - SOMNOLENCE [None]
